FAERS Safety Report 25563237 (Version 1)
Quarter: 2025Q3

REPORT INFORMATION
  Report Type: Other
  Country: GB (occurrence: GB)
  Receive Date: 20250716
  Receipt Date: 20250716
  Transmission Date: 20251021
  Serious: Yes (Disabling, Other)
  Sender: ASPEN
  Company Number: GB-MHRA-WEBRADR-202507091826391690-GHJQL

PATIENT

DRUGS (1)
  1. DEXAMETHASONE [Suspect]
     Active Substance: DEXAMETHASONE
     Indication: Arthritis
     Route: 014
     Dates: start: 20250519, end: 20250519

REACTIONS (5)
  - Pain in extremity [Recovering/Resolving]
  - Monoplegia [Recovered/Resolved]
  - Pain in extremity [Recovered/Resolved]
  - Arthralgia [Recovered/Resolved]
  - Peripheral swelling [Recovered/Resolved]

NARRATIVE: CASE EVENT DATE: 20250519
